FAERS Safety Report 6405473-0 (Version None)
Quarter: 2009Q4

REPORT INFORMATION
  Report Type: 
  Country: None (occurrence: None)
  Receive Date: 20091019
  Receipt Date: 20091008
  Transmission Date: 20100525
  Serious: Yes (Hospitalization)
  Sender: FDA-Public Use
  Company Number: JP-ASTRAZENECA-2009SE15062

PATIENT
  Age: 69 Year
  Sex: Female
  Weight: 52 kg

DRUGS (14)
  1. OMEPRAL [Suspect]
     Indication: GASTRIC ULCER HELICOBACTER
     Route: 048
     Dates: start: 20090812, end: 20090826
  2. AMOXICILLIN [Concomitant]
     Indication: GASTRIC ULCER HELICOBACTER
     Route: 048
  3. CLARITHROMYCIN [Concomitant]
     Indication: GASTRIC ULCER HELICOBACTER
     Route: 048
  4. MUCOSTA [Concomitant]
     Route: 048
     Dates: start: 20090812
  5. CERCINE [Concomitant]
     Route: 048
  6. POWDER MEDICINE [Concomitant]
     Route: 048
  7. ALOSENN [Concomitant]
     Route: 048
  8. DEPAS [Concomitant]
     Route: 048
  9. MYONAL [Concomitant]
     Route: 048
  10. MYSLEE [Concomitant]
     Route: 048
  11. JUVELA [Concomitant]
     Route: 048
  12. METHYCOBAL [Concomitant]
     Route: 048
  13. CHOREI-TO [Concomitant]
     Route: 048
  14. RUEFRIEN [Concomitant]
     Route: 048

REACTIONS (2)
  - DRUG ERUPTION [None]
  - RHABDOMYOLYSIS [None]
